FAERS Safety Report 18411772 (Version 1)
Quarter: 2020Q4

REPORT INFORMATION
  Report Type: Spontaneous
  Country: US (occurrence: US)
  Receive Date: 20201021
  Receipt Date: 20201021
  Transmission Date: 20210114
  Serious: No
  Sender: FDA-Public Use
  Company Number: US-JNJFOC-A-NJ2018-180252

PATIENT
  Age: 54 Year
  Sex: Female
  Weight: 92.52 kg

DRUGS (4)
  1. ORENITRAM [Suspect]
     Active Substance: TREPROSTINIL
     Indication: PRODUCT USED FOR UNKNOWN INDICATION
     Route: 065
  2. OPSUMIT [Suspect]
     Active Substance: MACITENTAN
     Indication: PULMONARY ARTERIAL HYPERTENSION
     Dosage: 10 MG, QD
     Route: 048
     Dates: start: 20180508
  3. REMODULIN [Concomitant]
     Active Substance: TREPROSTINIL
     Dosage: 0.03 ML/HR
  4. TADALAFIL. [Concomitant]
     Active Substance: TADALAFIL
     Dosage: 40 MG, QD

REACTIONS (14)
  - Fatigue [Unknown]
  - Pain in jaw [Unknown]
  - Nervousness [Recovering/Resolving]
  - Memory impairment [Recovering/Resolving]
  - Product dose omission in error [Recovering/Resolving]
  - Headache [Unknown]
  - Nausea [Unknown]
  - Abdominal pain upper [Unknown]
  - Restlessness [Unknown]
  - Feeling abnormal [Unknown]
  - Muscle spasms [Unknown]
  - Diarrhoea [Unknown]
  - Device infusion issue [Recovered/Resolved]
  - Abdominal discomfort [Unknown]

NARRATIVE: CASE EVENT DATE: 20181007
